FAERS Safety Report 23929416 (Version 1)
Quarter: 2024Q2

REPORT INFORMATION
  Report Type: Report from Study
  Country: US (occurrence: US)
  Receive Date: 20240601
  Receipt Date: 20240601
  Transmission Date: 20240716
  Serious: Yes (Hospitalization, Other)
  Sender: FDA-Public Use
  Company Number: US-UCBSA-2024026431

PATIENT
  Age: 30 Year
  Sex: Female

DRUGS (1)
  1. BRIVARACETAM [Suspect]
     Active Substance: BRIVARACETAM
     Indication: Seizure
     Dosage: 100 MILLIGRAM, 2X/DAY (BID)
     Dates: start: 202305

REACTIONS (5)
  - Neuroprosthesis implantation [Unknown]
  - Seizure [Unknown]
  - Partial seizures [Unknown]
  - Aura [Unknown]
  - Drug ineffective [Unknown]

NARRATIVE: CASE EVENT DATE: 20240521
